FAERS Safety Report 9159476 (Version 1)
Quarter: 2013Q1

REPORT INFORMATION
  Report Type: Spontaneous
  Country: US (occurrence: US)
  Receive Date: 20130313
  Receipt Date: 20130313
  Transmission Date: 20140127
  Serious: Yes (Other)
  Sender: FDA-Public Use
  Company Number: PHEH2013US005629

PATIENT
  Sex: Female

DRUGS (1)
  1. GLEEVEC [Suspect]

REACTIONS (1)
  - Disease progression [Unknown]
